FAERS Safety Report 5100831-9 (Version None)
Quarter: 2006Q3

REPORT INFORMATION
  Report Type: 
  Country: None (occurrence: None)
  Receive Date: 20060911
  Receipt Date: 20060831
  Transmission Date: 20061208
  Serious: Yes (Other)
  Sender: FDA-Public Use
  Company Number: US-JNJFOC-20060900249

PATIENT
  Sex: Female
  Weight: 55.34 kg

DRUGS (4)
  1. REMICADE [Suspect]
     Route: 042
  2. REMICADE [Suspect]
     Indication: COLITIS ULCERATIVE
     Route: 042
  3. PREDNISONE [Concomitant]
     Indication: COLITIS ULCERATIVE
  4. THYROID MEDICATION NOS [Concomitant]
     Indication: HYPOTHYROIDISM

REACTIONS (6)
  - ABDOMINAL DISTENSION [None]
  - BLISTER [None]
  - FLUID RETENTION [None]
  - HEADACHE [None]
  - LUPUS-LIKE SYNDROME [None]
  - PAIN IN JAW [None]
